FAERS Safety Report 8493966-4 (Version None)
Quarter: 2012Q3

REPORT INFORMATION
  Report Type: 
  Country: None (occurrence: None)
  Receive Date: 20120709
  Receipt Date: 20120705
  Transmission Date: 20120928
  Serious: Yes (Other)
  Sender: FDA-Public Use
  Company Number: SG-BAYER-2012-067202

PATIENT
  Age: 65 Year
  Sex: Male

DRUGS (2)
  1. ASPIRIN [Suspect]
     Route: 048
  2. CATAFLAM [Suspect]

REACTIONS (2)
  - EYE SWELLING [None]
  - DYSPNOEA [None]
